FAERS Safety Report 24858428 (Version 1)
Quarter: 2025Q1

REPORT INFORMATION
  Report Type: Spontaneous
  Country: US (occurrence: US)
  Receive Date: 20250117
  Receipt Date: 20250117
  Transmission Date: 20250409
  Serious: No
  Sender: MERCK
  Company Number: US-009507513-2501USA004473

PATIENT
  Sex: Female
  Weight: 65.76 kg

DRUGS (12)
  1. WINREVAIR [Suspect]
     Active Substance: SOTATERCEPT-CSRK
  2. ORENITRAM [Suspect]
     Active Substance: TREPROSTINIL
     Indication: Pulmonary arterial hypertension
     Dosage: 8 MILLIGRAM, TID, STRENGTH: 5 MG
     Route: 048
     Dates: start: 20240109
  3. ORENITRAM [Suspect]
     Active Substance: TREPROSTINIL
     Dosage: 7.75 MILLIGRAM, TID,STRENGTH: 1 MG
     Route: 048
  4. AMBRISENTAN [Concomitant]
     Active Substance: AMBRISENTAN
  5. FOLIC ACID [Concomitant]
     Active Substance: FOLIC ACID
  6. TYLENOL [Concomitant]
     Active Substance: ACETAMINOPHEN
  7. SILDENAFIL CITRATE [Concomitant]
     Active Substance: SILDENAFIL CITRATE
  8. OXYGEN [Concomitant]
     Active Substance: OXYGEN
  9. SPIRONOLACTONE [Concomitant]
     Active Substance: SPIRONOLACTONE
  10. ORENITRAM [Concomitant]
     Active Substance: TREPROSTINIL
  11. ZYRTEC [Concomitant]
     Active Substance: CETIRIZINE HYDROCHLORIDE
  12. ONDANSETRON HYDROCHLORIDE [Concomitant]
     Active Substance: ONDANSETRON HYDROCHLORIDE

REACTIONS (1)
  - Adverse event [Unknown]
